FAERS Safety Report 4732618-0 (Version None)
Quarter: 2005Q3

REPORT INFORMATION
  Report Type: 
  Country: None (occurrence: None)
  Receive Date: 20050728
  Receipt Date: 20050720
  Transmission Date: 20060218
  Serious: Yes (Hospitalization)
  Sender: FDA-Public Use
  Company Number: 2005BH000817

PATIENT
  Sex: Male
  Weight: 21 kg

DRUGS (1)
  1. FEIBA VH IMMUNO [Suspect]
     Dosage: UNKNOWN
     Route: 065

REACTIONS (2)
  - CATHETER RELATED COMPLICATION [None]
  - PYREXIA [None]
